FAERS Safety Report 15886143 (Version 1)
Quarter: 2019Q1

REPORT INFORMATION
  Report Type: Spontaneous
  Country: DE (occurrence: DE)
  Receive Date: 20190129
  Receipt Date: 20190129
  Transmission Date: 20190417
  Serious: Yes (Hospitalization, Other)
  Sender: FDA-Public Use
  Company Number: DE-PFIZER INC-2019035140

PATIENT
  Age: 50 Year
  Sex: Male

DRUGS (3)
  1. UNACID (AMPICILLIN SODIUM\SULBACTAM SODIUM) [Suspect]
     Active Substance: AMPICILLIN SODIUM\SULBACTAM SODIUM
     Dosage: UNK
     Route: 065
     Dates: start: 200210, end: 200210
  2. RULID [Concomitant]
     Active Substance: ROXITHROMYCIN
     Dosage: UNK
     Route: 048
     Dates: start: 200210, end: 200210
  3. VOLTAREN RESINAT [DICLOFENAC RESINATE] [Interacting]
     Active Substance: DICLOFENAC
     Indication: ANKYLOSING SPONDYLITIS
     Dosage: 1 DF, 2X/DAY
     Route: 048
     Dates: start: 1996

REACTIONS (3)
  - Blood creatinine increased [Unknown]
  - Drug interaction [Unknown]
  - Blood potassium increased [Unknown]

NARRATIVE: CASE EVENT DATE: 200210
